FAERS Safety Report 9782301 (Version 1)
Quarter: 2013Q4

REPORT INFORMATION
  Report Type: Spontaneous
  Country: EE (occurrence: EE)
  Receive Date: 20131226
  Receipt Date: 20131226
  Transmission Date: 20140711
  Serious: Yes (Other)
  Sender: FDA-Public Use
  Company Number: PHHY2013EE149129

PATIENT
  Age: 43 Year
  Sex: Male

DRUGS (5)
  1. CICLOSPORIN [Suspect]
     Indication: LIVER TRANSPLANT
  2. TACROLIMUS [Suspect]
     Indication: LIVER TRANSPLANT
  3. ANTIEPILEPTICS [Suspect]
     Indication: CONVULSION
  4. MYCOPHENOLATE MOFETIL [Concomitant]
     Indication: LIVER TRANSPLANT
  5. MEDROL [Concomitant]

REACTIONS (5)
  - Toxicity to various agents [Unknown]
  - Posterior reversible encephalopathy syndrome [Recovered/Resolved]
  - Central nervous system lesion [Recovered/Resolved]
  - Epilepsy [Unknown]
  - Hemianopia homonymous [Unknown]
